FAERS Safety Report 10410978 (Version 1)
Quarter: 2014Q3

REPORT INFORMATION
  Report Type: Spontaneous
  Country: NL (occurrence: NL)
  Receive Date: 20140826
  Receipt Date: 20140826
  Transmission Date: 20150326
  Serious: Yes (Other)
  Sender: FDA-Public Use
  Company Number: PHHY2014NL105778

PATIENT
  Sex: Male

DRUGS (2)
  1. PACLITAXEL. [Suspect]
     Active Substance: PACLITAXEL
     Route: 015
  2. CISPLATIN. [Suspect]
     Active Substance: CISPLATIN
     Route: 015

REACTIONS (6)
  - Premature baby [Unknown]
  - Foetal exposure during pregnancy [Unknown]
  - Ototoxicity [Unknown]
  - Low birth weight baby [Unknown]
  - Deafness bilateral [Unknown]
  - Hearing impaired [Unknown]
